FAERS Safety Report 5549858-3 (Version None)
Quarter: 2007Q4

REPORT INFORMATION
  Report Type: 
  Country: None (occurrence: None)
  Receive Date: 20071212
  Receipt Date: 20071210
  Transmission Date: 20080405
  Serious: Yes (Hospitalization)
  Sender: FDA-Public Use
  Company Number: FR-BRISTOL-MYERS SQUIBB COMPANY-14010409

PATIENT
  Age: 86 Year
  Sex: Female

DRUGS (9)
  1. LOPRIL TABS 50 MG [Suspect]
     Indication: HYPERTENSION
     Dates: end: 20070530
  2. DEROXAT [Suspect]
     Indication: DEPRESSION
  3. ARIMIDEX [Concomitant]
  4. MONO-TILDIEM LP [Concomitant]
     Dosage: STRENGTH: 200
  5. PLAVIX [Concomitant]
  6. NOVOLOG MIX 70/30 [Concomitant]
     Dosage: STRENGTH 30; 14-0-12.
  7. SPASFON [Concomitant]
     Dosage: 2X3/DAY.
  8. DUPHALAC [Concomitant]
  9. TROSPIUM CHLORIDE [Concomitant]

REACTIONS (3)
  - HYPONATRAEMIA [None]
  - RENAL FAILURE ACUTE [None]
  - SUBILEUS [None]
